FAERS Safety Report 5425379-3 (Version None)
Quarter: 2007Q3

REPORT INFORMATION
  Report Type: 
  Country: None (occurrence: None)
  Receive Date: 20070824
  Receipt Date: 20070824
  Transmission Date: 20080115
  Serious: Yes (Hospitalization)
  Sender: FDA-Public Use
  Company Number: DE-ROXANE LABORATORIES, INC-2007-DE-04902GD

PATIENT
  Age: 22 Year
  Sex: Male

DRUGS (9)
  1. MORPHINE [Suspect]
  2. PARACETAMOL [Suspect]
  3. DIAZEPAM [Suspect]
  4. LIDOCAINE [Suspect]
  5. CODEINE SUL TAB [Suspect]
  6. THC-COOH [Suspect]
  7. PAPAVERINE [Suspect]
  8. HEROIN [Suspect]
  9. FLUNITRAZEPAM [Suspect]

REACTIONS (4)
  - BRADYPNOEA [None]
  - DRUG TOXICITY [None]
  - RESPIRATORY FAILURE [None]
  - SOMNOLENCE [None]
